FAERS Safety Report 4765117-0 (Version None)
Quarter: 2005Q3

REPORT INFORMATION
  Report Type: 
  Country: None (occurrence: None)
  Receive Date: 20050907
  Receipt Date: 20050823
  Transmission Date: 20060218
  Serious: Yes (Hospitalization, Disabling)
  Sender: FDA-Public Use
  Company Number: CIP05001582

PATIENT
  Age: 36 Year
  Sex: Female
  Weight: 83.9 kg

DRUGS (10)
  1. ASACOL [Suspect]
     Indication: COLITIS ULCERATIVE
     Dosage: SEE IMAGE
     Route: 048
     Dates: start: 20010101, end: 20050129
  2. ASACOL [Suspect]
     Indication: COLITIS ULCERATIVE
     Dosage: SEE IMAGE
     Route: 048
     Dates: start: 20050101
  3. ZOLOFT [Concomitant]
  4. MERCAPTOPURINE [Concomitant]
  5. FERGON (FERROUS GLUCONATE) [Concomitant]
  6. ATENOLOL [Concomitant]
  7. FOLIC ACID [Concomitant]
  8. DONNATAL (PHENOBARBITAL, HYOSCYAMINE SULFATE, HYOSCINE HYDROBROMIDE, A [Concomitant]
  9. LOMOTIL [Concomitant]
  10. ZANTAC [Concomitant]

REACTIONS (24)
  - ANAEMIA [None]
  - ANAEMIA OF CHRONIC DISEASE [None]
  - BAND NEUTROPHIL PERCENTAGE INCREASED [None]
  - BLOOD CALCIUM DECREASED [None]
  - BLOOD PHOSPHORUS INCREASED [None]
  - BLOOD THYROID STIMULATING HORMONE DECREASED [None]
  - CARBON DIOXIDE DECREASED [None]
  - DIALYSIS [None]
  - DIARRHOEA [None]
  - HYPERPARATHYROIDISM SECONDARY [None]
  - HYPOKALAEMIA [None]
  - HYPOVOLAEMIA [None]
  - LYMPHOCYTE COUNT DECREASED [None]
  - LYMPHOCYTE PERCENTAGE DECREASED [None]
  - MEAN PLATELET VOLUME DECREASED [None]
  - METABOLIC ACIDOSIS [None]
  - MONOCYTE COUNT INCREASED [None]
  - NEPHROSCLEROSIS [None]
  - NEUTROPHIL COUNT INCREASED [None]
  - NEUTROPHIL PERCENTAGE INCREASED [None]
  - PLATELET COUNT INCREASED [None]
  - RENAL DISORDER [None]
  - RENAL FAILURE [None]
  - WHITE BLOOD CELL COUNT DECREASED [None]
